FAERS Safety Report 10069017 (Version 2)
Quarter: 2014Q2

REPORT INFORMATION
  Report Type: Report from Study
  Country: NZ (occurrence: NZ)
  Receive Date: 20140409
  Receipt Date: 20140411
  Transmission Date: 20141212
  Serious: Yes (Death)
  Sender: FDA-Public Use
  Company Number: PHHY2014NZ043294

PATIENT
  Age: 75 Year
  Sex: Female

DRUGS (2)
  1. CLOZARIL [Suspect]
     Dosage: UNK
     Dates: start: 20061031
  2. CLOZARIL [Suspect]
     Dosage: UNK
     Dates: start: 2013

REACTIONS (1)
  - Death [Fatal]
